FAERS Safety Report 23103495 (Version 1)
Quarter: 2023Q4

REPORT INFORMATION
  Report Type: Spontaneous
  Country: US (occurrence: None)
  Receive Date: 20231024
  Receipt Date: 20231024
  Transmission Date: 20240110
  Serious: Yes (Disabling)
  Sender: FDA-Public Use
  Company Number: None

PATIENT
  Age: 56 Year
  Sex: Female
  Weight: 58.5 kg

DRUGS (4)
  1. OTEZLA [Suspect]
     Active Substance: APREMILAST
     Indication: Psoriasis
     Dosage: OTHER QUANTITY : 1 TABLET(S);?FREQUENCY : TWICE A DAY;?
     Route: 048
     Dates: start: 20230927, end: 20231024
  2. LOSARTAN [Concomitant]
     Active Substance: LOSARTAN
  3. VENLAFAXINE HCL [Concomitant]
     Active Substance: VENLAFAXINE HYDROCHLORIDE
  4. VITAMIN D3 [Concomitant]
     Active Substance: CHOLECALCIFEROL

REACTIONS (9)
  - Headache [None]
  - Respiratory disorder [None]
  - Decreased appetite [None]
  - Nausea [None]
  - Vomiting [None]
  - Diarrhoea [None]
  - Pain [None]
  - Illness [None]
  - Depression [None]

NARRATIVE: CASE EVENT DATE: 20230929
